FAERS Safety Report 8203298-7 (Version None)
Quarter: 2012Q1

REPORT INFORMATION
  Report Type: 
  Country: None (occurrence: None)
  Receive Date: 20120312
  Receipt Date: 20120123
  Transmission Date: 20120608
  Serious: Yes (Other)
  Sender: FDA-Public Use
  Company Number: US-WATSON-2012-01800

PATIENT
  Age: 70 Year
  Sex: Male

DRUGS (1)
  1. TESTOSTERONE ENANTHATE [Suspect]
     Indication: BLOOD TESTOSTERONE DECREASED
     Dosage: ONCE PER MONTH
     Route: 030

REACTIONS (1)
  - OSTEONECROSIS [None]
